FAERS Safety Report 4862560-6 (Version None)
Quarter: 2005Q4

REPORT INFORMATION
  Report Type: 
  Country: None (occurrence: None)
  Receive Date: 20051221
  Receipt Date: 20051214
  Transmission Date: 20060501
  Serious: Yes (Hospitalization)
  Sender: FDA-Public Use
  Company Number: FR-GLAXOSMITHKLINE-B0403600A

PATIENT
  Age: 89 Year
  Sex: Female

DRUGS (6)
  1. DEROXAT [Suspect]
     Dosage: 20MG PER DAY
     Route: 048
  2. DI ANTALVIC [Suspect]
     Route: 048
  3. DITROPAN [Suspect]
     Dosage: 2TAB PER DAY
     Route: 048
  4. OROCAL [Concomitant]
     Dosage: 1UNIT PER DAY
     Route: 048
  5. IMPORTAL [Concomitant]
     Dosage: 1UNIT AS REQUIRED
     Route: 048
  6. FUROSEMIDE [Concomitant]
     Dosage: 20MG PER DAY
     Route: 048

REACTIONS (8)
  - CONSTIPATION [None]
  - DEHYDRATION [None]
  - DISORIENTATION [None]
  - DISTURBANCE IN ATTENTION [None]
  - DRUG INTERACTION [None]
  - FALL [None]
  - MEMORY IMPAIRMENT [None]
  - RENAL FAILURE [None]
